FAERS Safety Report 8373403-0 (Version None)
Quarter: 2012Q2

REPORT INFORMATION
  Report Type: 
  Country: None (occurrence: None)
  Receive Date: 20120521
  Receipt Date: 20111010
  Transmission Date: 20120825
  Serious: No
  Sender: FDA-Public Use
  Company Number: US-TEVA-2011005331

PATIENT
  Sex: Male
  Weight: 93.07 kg

DRUGS (3)
  1. RITUXAN [Concomitant]
  2. NEULASTA [Concomitant]
  3. TREANDA [Suspect]
     Indication: CHRONIC LYMPHOCYTIC LEUKAEMIA
     Route: 042
     Dates: start: 20101229, end: 20110901

REACTIONS (10)
  - PLATELET COUNT DECREASED [None]
  - PYREXIA [None]
  - COUGH [None]
  - WHITE BLOOD CELL COUNT DECREASED [None]
  - PNEUMONIA [None]
  - ASTHENIA [None]
  - RED BLOOD CELL COUNT DECREASED [None]
  - INCREASED UPPER AIRWAY SECRETION [None]
  - FATIGUE [None]
  - ASTHMA [None]
